FAERS Safety Report 4429587-X (Version None)
Quarter: 2004Q3

REPORT INFORMATION
  Report Type: 
  Country: None (occurrence: None)
  Receive Date: 20040816
  Receipt Date: 20040728
  Transmission Date: 20050211
  Serious: Yes (Other)
  Sender: FDA-Public Use
  Company Number: JP-SHR-03-011731

PATIENT
  Age: 18 Year
  Sex: Male

DRUGS (9)
  1. BETAFERON (INTERFERON BETA-1B)INJECTION [Suspect]
     Indication: MULTIPLE SCLEROSIS
     Dosage: SEE IMAGE
     Route: 058
     Dates: start: 20020731, end: 20020804
  2. BETAFERON (INTERFERON BETA-1B)INJECTION [Suspect]
     Indication: MULTIPLE SCLEROSIS
     Dosage: SEE IMAGE
     Route: 058
     Dates: start: 20020806, end: 20021107
  3. LOXONIN(LOXOPROFEN SODIUM) [Concomitant]
  4. DASEN (SERRAPEPTASE) [Concomitant]
  5. MUCOSTA (REBAMIPIDE) [Concomitant]
  6. METHYCOBAL (MECOBALAMIN) [Concomitant]
  7. SOLU-MEDROL [Concomitant]
  8. INTEBAN [Concomitant]
  9. FAMOTIDINE [Concomitant]

REACTIONS (3)
  - BRAIN OEDEMA [None]
  - DIPLEGIA [None]
  - MULTIPLE SCLEROSIS [None]
